FAERS Safety Report 9571134 (Version 2)
Quarter: 2013Q4

REPORT INFORMATION
  Report Type: Spontaneous
  Country: JP (occurrence: JP)
  Receive Date: 20131001
  Receipt Date: 20131024
  Transmission Date: 20140711
  Serious: Yes (Hospitalization, Other)
  Sender: FDA-Public Use
  Company Number: PHHY2013JP108125

PATIENT
  Age: 68 Year
  Sex: Female

DRUGS (2)
  1. NEORAL [Suspect]
     Indication: THROMBOCYTOPENIC PURPURA
     Dosage: 90 MG, DAILY
     Route: 048
     Dates: start: 20100826, end: 20130120
  2. NEORAL [Suspect]
     Dosage: UNK
     Route: 048
     Dates: start: 20130121, end: 20130124

REACTIONS (5)
  - Nephrotic syndrome [Recovered/Resolved]
  - Face oedema [Unknown]
  - Oedema peripheral [Unknown]
  - Pancytopenia [Recovering/Resolving]
  - Renal impairment [Recovered/Resolved]
